FAERS Safety Report 4553337-X (Version None)
Quarter: 2005Q1

REPORT INFORMATION
  Report Type: 
  Country: None (occurrence: None)
  Receive Date: 20050112
  Receipt Date: 20050104
  Transmission Date: 20050727
  Serious: No
  Sender: FDA-Public Use
  Company Number: 2005GB00022

PATIENT
  Age: 75 Year
  Sex: Female

DRUGS (3)
  1. OMEPRAZOLE [Suspect]
     Indication: DYSPEPSIA
     Dosage: 20 MG PO
     Route: 048
     Dates: start: 20040816, end: 20041111
  2. GAVISCON [Concomitant]
  3. CO-CODAMOL [Concomitant]

REACTIONS (3)
  - DYSPHAGIA [None]
  - SPEECH DISORDER [None]
  - SWOLLEN TONGUE [None]
